FAERS Safety Report 6934490-7 (Version None)
Quarter: 2010Q3

REPORT INFORMATION
  Report Type: 
  Country: None (occurrence: None)
  Receive Date: 20100820
  Receipt Date: 20100817
  Transmission Date: 20110219
  Serious: Yes (Life-Threatening, Hospitalization)
  Sender: FDA-Public Use
  Company Number: DE-B.I. PHARMACEUTICALS,INC./RIDGEFIELD-2010-DE-04491DE

PATIENT
  Sex: Male

DRUGS (1)
  1. SPIRIVA [Suspect]
     Indication: DYSPNOEA
     Dosage: TOTAL DOSE: APPROX. 20-30 PUFFS
     Route: 055
     Dates: start: 20100806, end: 20100816

REACTIONS (3)
  - HAEMORRHAGE INTRACRANIAL [None]
  - HEMIPARESIS [None]
  - PLATELET COUNT DECREASED [None]
